FAERS Safety Report 7967126-7 (Version None)
Quarter: 2011Q4

REPORT INFORMATION
  Report Type: 
  Country: None (occurrence: None)
  Receive Date: 20111205
  Receipt Date: 20111119
  Transmission Date: 20120403
  Serious: Yes (Hospitalization)
  Sender: FDA-Public Use
  Company Number: 2011AP002765

PATIENT
  Age: 52 Year
  Sex: Female

DRUGS (4)
  1. BENDROFLUMETHIAZIDE (BENDROFLUMETHIAZIDE) [Suspect]
     Indication: PRODUCT USED FOR UNKNOWN INDICATION
  2. LAMOTRIGINE [Suspect]
     Indication: EPILEPSY
  3. CARBAMAZEPINE [Suspect]
     Indication: EPILEPSY
     Dosage: 600 MG; 300MG
  4. CITALOPRAM HYDROBROMIDE [Suspect]
     Indication: PRODUCT USED FOR UNKNOWN INDICATION

REACTIONS (11)
  - VULVOVAGINAL DISCOMFORT [None]
  - COORDINATION ABNORMAL [None]
  - CONFUSIONAL STATE [None]
  - SOMNOLENCE [None]
  - LETHARGY [None]
  - HYPOKALAEMIA [None]
  - URINARY TRACT INFECTION [None]
  - HYPONATRAEMIA [None]
  - ENTEROCOCCUS TEST POSITIVE [None]
  - HYPERAMMONAEMIA [None]
  - HYPERREFLEXIA [None]
